FAERS Safety Report 8900380 (Version 2)
Quarter: 2012Q4

REPORT INFORMATION
  Report Type: 
  Country: US (occurrence: US)
  Receive Date: 20121109
  Receipt Date: 20121112
  Transmission Date: 20130627
  Serious: No
  Sender: FDA-Public Use
  Company Number: US-PFIZER INC-2012269497

PATIENT
  Age: 67 Year
  Sex: Female
  Weight: 41.72 kg

DRUGS (2)
  1. PREMARIN VAGINAL CREAM [Suspect]
     Indication: VULVOVAGINAL DRYNESS
     Dosage: 0.625 mg (1 g) 3 x week
     Route: 067
  2. RHINOCORT AQUA [Concomitant]
     Indication: SEASONAL ALLERGY
     Dosage: UNK, as needed

REACTIONS (2)
  - Product quality issue [Unknown]
  - Incorrect dose administered [Unknown]
